FAERS Safety Report 15746667 (Version 3)
Quarter: 2019Q2

REPORT INFORMATION
  Report Type: Spontaneous
  Country: US (occurrence: US)
  Receive Date: 20181220
  Receipt Date: 20190411
  Transmission Date: 20190711
  Serious: Yes (Other)
  Sender: FDA-Public Use
  Company Number: US-PRINSTON PHARMACEUTICAL INC.-2018PRN01307

PATIENT
  Age: 57 Year
  Sex: Female
  Weight: 68.03 kg

DRUGS (4)
  1. PROPRANOLOL [Concomitant]
     Active Substance: PROPRANOLOL HYDROCHLORIDE
  2. CLOPIDOGREL [Concomitant]
     Active Substance: CLOPIDOGREL BISULFATE
  3. ROSUVASTATIN. [Concomitant]
     Active Substance: ROSUVASTATIN
  4. VALSARTAN. [Suspect]
     Active Substance: VALSARTAN
     Indication: HYPERTENSION
     Dosage: 160 MG, 1X/DAY
     Route: 048
     Dates: start: 20150813, end: 201812

REACTIONS (11)
  - Cardiac disorder [Unknown]
  - Head injury [Recovered/Resolved]
  - Fatigue [Not Recovered/Not Resolved]
  - Atrial fibrillation [Unknown]
  - Headache [Not Recovered/Not Resolved]
  - Cataract [Unknown]
  - Fall [Recovered/Resolved]
  - Swelling [Recovered/Resolved]
  - Dizziness [Not Recovered/Not Resolved]
  - Recalled product administered [Unknown]
  - Contusion [Recovered/Resolved]

NARRATIVE: CASE EVENT DATE: 201812
